FAERS Safety Report 7057451-9 (Version None)
Quarter: 2010Q4

REPORT INFORMATION
  Report Type: 
  Country: None (occurrence: None)
  Receive Date: 20101022
  Receipt Date: 20101008
  Transmission Date: 20110411
  Serious: Yes (Hospitalization)
  Sender: FDA-Public Use
  Company Number: NL-ROCHE-650505

PATIENT
  Age: 58 Year
  Sex: Female

DRUGS (3)
  1. XELODA [Suspect]
     Dosage: STARTED 2 WEEKS AFTER LAST TREATMENT WITH FOLFOX
     Route: 048
     Dates: start: 20080601
  2. AVASTIN [Suspect]
     Route: 042
     Dates: start: 20080501
  3. OXALIPLATIN [Suspect]
     Dosage: STARTED 2 WEEKS AFTER LAST TREATMENT WITH FOLFOX
     Route: 042
     Dates: start: 20080501

REACTIONS (4)
  - DEHYDRATION [None]
  - DIARRHOEA [None]
  - NAUSEA [None]
  - VOMITING [None]
